FAERS Safety Report 12242964 (Version 2)
Quarter: 2017Q1

REPORT INFORMATION
  Report Type: Spontaneous
  Country: US (occurrence: US)
  Receive Date: 20160406
  Receipt Date: 20170127
  Transmission Date: 20170428
  Serious: Yes (Other)
  Sender: FDA-Public Use
  Company Number: US-ELI_LILLY_AND_COMPANY-US201604000481

PATIENT
  Sex: Female

DRUGS (3)
  1. MS IR [Concomitant]
     Active Substance: MORPHINE SULFATE
     Indication: PAIN
     Dosage: 30 MG, PRN
     Route: 065
  2. CYMBALTA [Suspect]
     Active Substance: DULOXETINE HYDROCHLORIDE
     Indication: PAIN
     Dosage: 60 MG, UNKNOWN
     Route: 065
  3. MS CONTIN [Concomitant]
     Active Substance: MORPHINE SULFATE
     Indication: PAIN
     Dosage: 30 MG, BID
     Route: 065

REACTIONS (22)
  - Fatigue [Unknown]
  - Vertigo [Unknown]
  - Nightmare [Unknown]
  - Paraesthesia [Unknown]
  - Affect lability [Unknown]
  - Nausea [Unknown]
  - Hyperhidrosis [Unknown]
  - Tinnitus [Unknown]
  - Withdrawal syndrome [Unknown]
  - Insomnia [Unknown]
  - Abdominal pain upper [Unknown]
  - Agitation [Unknown]
  - Suicidal ideation [Unknown]
  - Mood swings [Unknown]
  - Lethargy [Unknown]
  - Anxiety [Unknown]
  - Irritability [Unknown]
  - Vomiting [Unknown]
  - Dizziness [Unknown]
  - Asthenia [Unknown]
  - Dysphoria [Unknown]
  - Headache [Unknown]
